FAERS Safety Report 15323418 (Version 2)
Quarter: 2019Q1

REPORT INFORMATION
  Report Type: Spontaneous
  Country: ZA (occurrence: ZA)
  Receive Date: 20180827
  Receipt Date: 20190129
  Transmission Date: 20190417
  Serious: Yes (Death)
  Sender: FDA-Public Use
  Company Number: ZA-SA-2018SA225957

PATIENT
  Sex: Male

DRUGS (9)
  1. POTASSIUM CHLORIDE. [Suspect]
     Active Substance: POTASSIUM CHLORIDE
  2. ACETYLSALICYLIC ACID [Suspect]
     Active Substance: ASPIRIN
  3. SIMVASTATIN. [Suspect]
     Active Substance: SIMVASTATIN
  4. LASIX [Suspect]
     Active Substance: FUROSEMIDE
     Dosage: 80 MG
  5. CLOPIDOGREL BISULFATE. [Suspect]
     Active Substance: CLOPIDOGREL BISULFATE
     Dosage: 75 MG
  6. SPIRONOLACTONE. [Suspect]
     Active Substance: SPIRONOLACTONE
  7. PANTOCID [PANTOPRAZOLE SODIUM SESQUIHYDRATE] [Suspect]
     Active Substance: PANTOPRAZOLE SODIUM
  8. PERINDOPRIL ERBUMINE. [Suspect]
     Active Substance: PERINDOPRIL ERBUMINE
  9. ALPRAZOLAM. [Suspect]
     Active Substance: ALPRAZOLAM

REACTIONS (1)
  - Heart rate abnormal [Fatal]
